FAERS Safety Report 12577149 (Version 1)
Quarter: 2016Q3

REPORT INFORMATION
  Report Type: Spontaneous
  Country: US (occurrence: US)
  Receive Date: 20160720
  Receipt Date: 20160720
  Transmission Date: 20161109
  Serious: No
  Sender: FDA-Public Use
  Company Number: US-PERRIGO-15US006906

PATIENT
  Age: 47 Year
  Sex: Female
  Weight: 77.98 kg

DRUGS (4)
  1. MICONAZOLE 1 [Suspect]
     Active Substance: MICONAZOLE NITRATE
     Indication: VAGINAL DISCHARGE
  2. MICONAZOLE 1 [Suspect]
     Active Substance: MICONAZOLE NITRATE
     Indication: VULVOVAGINAL PRURITUS
     Dosage: 1 SMALL APPLICATION, SINGLE
     Route: 061
     Dates: start: 20150630, end: 20150630
  3. MICONAZOLE 1 [Suspect]
     Active Substance: MICONAZOLE NITRATE
     Indication: VULVOVAGINAL PRURITUS
  4. MICONAZOLE 1 [Suspect]
     Active Substance: MICONAZOLE NITRATE
     Indication: VULVOVAGINAL MYCOTIC INFECTION
     Dosage: 1200 MG, SINGLE
     Route: 067
     Dates: start: 20150630, end: 20150630

REACTIONS (4)
  - Drug ineffective [Unknown]
  - Vulvovaginal burning sensation [Unknown]
  - Vulvovaginal pruritus [None]
  - Condition aggravated [Unknown]

NARRATIVE: CASE EVENT DATE: 20150630
